FAERS Safety Report 8499536-6 (Version None)
Quarter: 2012Q2

REPORT INFORMATION
  Report Type: 
  Country: None (occurrence: None)
  Receive Date: 20120629
  Receipt Date: 20120622
  Transmission Date: 20120825
  Serious: Yes (Other)
  Sender: FDA-Public Use
  Company Number: GER/GER/12/0024800

PATIENT
  Age: 36 Year
  Sex: Female

DRUGS (3)
  1. VENLAFAXINE HCL [Suspect]
     Indication: DEPRESSION
     Dosage: 150 MG, 1 D, ORAL
     Route: 048
     Dates: start: 20100126, end: 20101029
  2. LITHIUM CARBONATE [Suspect]
     Indication: BIPOLAR DISORDER
     Dosage: 900 MG, 1 D, ORAL
     Route: 048
     Dates: start: 20100126, end: 20101029
  3. SEROQUEL [Suspect]
     Indication: DEPRESSION
     Dosage: 200 MG, 1 D, ORAL
     Route: 048
     Dates: start: 20100126, end: 20101029

REACTIONS (4)
  - OBSTRUCTED LABOUR [None]
  - CEPHALO-PELVIC DISPROPORTION [None]
  - CAESAREAN SECTION [None]
  - MATERNAL EXPOSURE DURING PREGNANCY [None]
